FAERS Safety Report 17967913 (Version 1)
Quarter: 2020Q2

REPORT INFORMATION
  Report Type: Spontaneous
  Country: US (occurrence: US)
  Receive Date: 20200630
  Receipt Date: 20200630
  Transmission Date: 20200714
  Serious: Yes (Other)
  Sender: FDA-Public Use
  Company Number: None

PATIENT
  Age: 53 Year
  Sex: Female

DRUGS (1)
  1. HUMALOG [Suspect]
     Active Substance: INSULIN LISPRO
     Indication: TYPE 1 DIABETES MELLITUS
     Dosage: ?          QUANTITY:5 CARTRIDGES;?
     Route: 030
     Dates: start: 20200624, end: 20200630

REACTIONS (7)
  - Vision blurred [None]
  - Irritability [None]
  - Drug ineffective [None]
  - Intentional product use issue [None]
  - Suspected product quality issue [None]
  - Fatigue [None]
  - Blood glucose increased [None]

NARRATIVE: CASE EVENT DATE: 20200624
